FAERS Safety Report 5407466-9 (Version None)
Quarter: 2007Q3

REPORT INFORMATION
  Report Type: 
  Country: None (occurrence: None)
  Receive Date: 20070807
  Receipt Date: 20070730
  Transmission Date: 20080115
  Serious: Yes (Hospitalization, Other)
  Sender: FDA-Public Use
  Company Number: US-PFIZER INC-2007031100

PATIENT
  Sex: Female

DRUGS (2)
  1. BEXTRA [Suspect]
     Indication: INTERVERTEBRAL DISC DISORDER
  2. VIOXX [Suspect]
     Route: 048
     Dates: start: 20040101

REACTIONS (1)
  - CEREBROVASCULAR ACCIDENT [None]
